FAERS Safety Report 8760633 (Version 3)
Quarter: 2012Q4

REPORT INFORMATION
  Report Type: Spontaneous
  Country: JP (occurrence: None)
  Receive Date: 20120822
  Receipt Date: 20120913
  Transmission Date: 20130627
  Serious: Yes (Hospitalization)
  Sender: FDA-Public Use
  Company Number: 2012MPI00361

PATIENT
  Age: 27 Year
  Sex: Male

DRUGS (2)
  1. BRENTUXIMAB VEDOTIN [Suspect]
     Indication: HODGKIN^S LYMPHOMA
     Dosage: Q21D
     Route: 041
     Dates: start: 20120515, end: 20120806
  2. BRENTUXIMAB VEDOTIN [Suspect]
     Indication: HODGKIN^S LYMPHOMA
     Dosage: Q21D
     Route: 042
     Dates: start: 20120821

REACTIONS (1)
  - Pneumonia [None]
